FAERS Safety Report 5587343-3 (Version None)
Quarter: 2008Q1

REPORT INFORMATION
  Report Type: 
  Country: None (occurrence: None)
  Receive Date: 20080110
  Receipt Date: 20080103
  Transmission Date: 20080703
  Serious: Yes (Other)
  Sender: FDA-Public Use
  Company Number: US-PFIZER INC-2008001261

PATIENT
  Sex: Female
  Weight: 111.36 kg

DRUGS (1)
  1. ZITHROMAX [Suspect]
     Indication: EAR INFECTION
     Dates: start: 20071217, end: 20071222

REACTIONS (3)
  - DEAFNESS [None]
  - TINNITUS [None]
  - VIIITH NERVE LESION [None]
